FAERS Safety Report 23436364 (Version 1)
Quarter: 2024Q1

REPORT INFORMATION
  Report Type: Other
  Country: ES (occurrence: ES)
  Receive Date: 20240124
  Receipt Date: 20240124
  Transmission Date: 20240410
  Serious: Yes (Hospitalization)
  Sender: FDA-Public Use
  Company Number: ES-ALVOGEN-2024092895

PATIENT

DRUGS (1)
  1. AMPHETAMINE [Suspect]
     Active Substance: AMPHETAMINE
     Indication: Product used for unknown indication

REACTIONS (1)
  - Hepatocellular injury [Recovered/Resolved]
